FAERS Safety Report 5072179-2 (Version None)
Quarter: 2006Q3

REPORT INFORMATION
  Report Type: 
  Country: None (occurrence: None)
  Receive Date: 20060801
  Receipt Date: 20060719
  Transmission Date: 20061208
  Serious: Yes (Other)
  Sender: FDA-Public Use
  Company Number: 2006089512

PATIENT
  Age: 57 Year
  Sex: Female
  Weight: 78.4723 kg

DRUGS (3)
  1. NORVASC [Suspect]
     Indication: HYPERTENSION
     Dosage: 5 MG (5 MG, FREQUENCY:  QD INTERVAL:  EVERYDAY)
     Dates: start: 19930101
  2. DYAZIDE [Concomitant]
  3. POTASSIUM (POTASSIUM) [Concomitant]

REACTIONS (3)
  - OEDEMA [None]
  - OEDEMA PERIPHERAL [None]
  - SOMNOLENCE [None]
